FAERS Safety Report 20980529 (Version 1)
Quarter: 2022Q2

REPORT INFORMATION
  Report Type: Spontaneous
  Country: CA (occurrence: None)
  Receive Date: 20220620
  Receipt Date: 20220620
  Transmission Date: 20220721
  Serious: Yes (Other)
  Sender: FDA-Public Use
  Company Number: CA-ROCHE-3117706

PATIENT
  Age: 64 Year
  Sex: Female
  Weight: 83 kg

DRUGS (30)
  1. RITUXIMAB [Suspect]
     Active Substance: RITUXIMAB
     Indication: Rheumatoid arthritis
     Dosage: THERAPY DURATION AND THERAPY DURATION UNITS 15 DAYS
     Route: 042
  2. DOMPERIDONE [Concomitant]
     Active Substance: DOMPERIDONE
  3. EPIPEN [Concomitant]
     Active Substance: EPINEPHRINE
     Dosage: 0.3MG/0.3ML AUTO-INJECTOR
     Route: 030
  4. PANTOPRAZOLE MAGNESIUM [Concomitant]
     Active Substance: PANTOPRAZOLE MAGNESIUM
  5. CALCIUM [Concomitant]
     Active Substance: CALCIUM
  6. COLLAGEN [Concomitant]
     Active Substance: COLLAGEN
  7. WELLBUTRIN [Concomitant]
     Active Substance: BUPROPION HYDROCHLORIDE
  8. PROGESTERONE [Concomitant]
     Active Substance: PROGESTERONE
  9. CYCLOBENZAPRINE HYDROCHLORIDE [Concomitant]
     Active Substance: CYCLOBENZAPRINE HYDROCHLORIDE
  10. TYLENOL [Concomitant]
     Active Substance: ACETAMINOPHEN
     Indication: Premedication
  11. SOLU-MEDROL [Concomitant]
     Active Substance: METHYLPREDNISOLONE SODIUM SUCCINATE
     Indication: Premedication
     Route: 042
  12. CRANBERRY [Concomitant]
     Active Substance: CRANBERRY
  13. CETIRIZINE HYDROCHLORIDE [Concomitant]
     Active Substance: CETIRIZINE HYDROCHLORIDE
  14. ESTRADIOL [Concomitant]
     Active Substance: ESTRADIOL
  15. ACLASTA [Concomitant]
     Active Substance: ZOLEDRONIC ACID
  16. CLONIDINE [Concomitant]
     Active Substance: CLONIDINE
  17. RANITIDINE [Concomitant]
     Active Substance: RANITIDINE
  18. METHYLPREDNISOLONE ACETATE [Concomitant]
     Active Substance: METHYLPREDNISOLONE ACETATE
  19. CITALOPRAM HYDROBROMIDE [Concomitant]
     Active Substance: CITALOPRAM HYDROBROMIDE
  20. VITAMIN C [Concomitant]
     Active Substance: ASCORBIC ACID
  21. GRAVOL [Concomitant]
     Active Substance: DIMENHYDRINATE
  22. ORUDIS [Concomitant]
     Active Substance: KETOPROFEN
  23. PREDNISONE [Concomitant]
     Active Substance: PREDNISONE
  24. LINACLOTIDE [Concomitant]
     Active Substance: LINACLOTIDE
  25. NORTRIPTYLINE [Concomitant]
     Active Substance: NORTRIPTYLINE
  26. COD LIVER OIL [Concomitant]
     Active Substance: COD LIVER OIL
  27. ADVAIR HFA [Concomitant]
     Active Substance: FLUTICASONE PROPIONATE\SALMETEROL XINAFOATE
  28. VENTOLIN [Concomitant]
     Active Substance: ALBUTEROL SULFATE
  29. QUETIAPINE FUMARATE [Concomitant]
     Active Substance: QUETIAPINE FUMARATE
  30. BENADRYL [Concomitant]
     Active Substance: DIPHENHYDRAMINE HYDROCHLORIDE
     Indication: Premedication
     Route: 048

REACTIONS (6)
  - Depressive symptom [Not Recovered/Not Resolved]
  - Illness [Not Recovered/Not Resolved]
  - Diarrhoea [Not Recovered/Not Resolved]
  - Depression [Not Recovered/Not Resolved]
  - COVID-19 [Not Recovered/Not Resolved]
  - Weight decreased [Not Recovered/Not Resolved]
